FAERS Safety Report 10022400 (Version 2)
Quarter: 2014Q1

REPORT INFORMATION
  Report Type: Spontaneous
  Country: DE (occurrence: DE)
  Receive Date: 20140319
  Receipt Date: 20140319
  Transmission Date: 20141002
  Serious: Yes (Death, Hospitalization, Other)
  Sender: FDA-Public Use
  Company Number: DE-GILEAD-2013-0085417

PATIENT
  Age: 72 Year
  Sex: Male
  Weight: 85 kg

DRUGS (14)
  1. FUROSEMIDE [Concomitant]
     Dosage: 200MG TWICE PER DAY
     Route: 065
  2. SYMBICORT [Concomitant]
     Dosage: 329UG TWICE PER DAY
     Route: 055
  3. FERROSANOL [Concomitant]
     Dosage: 100MG UNKNOWN
     Route: 048
  4. AMBRISENTAN [Suspect]
     Indication: PULMONARY ARTERIAL HYPERTENSION
     Dosage: 5 MG, QD
     Route: 048
     Dates: start: 201309, end: 201309
  5. REVATIO [Concomitant]
     Indication: PULMONARY ARTERIAL HYPERTENSION
     Dosage: 40MG THREE TIMES PER DAY
     Route: 065
  6. REVATIO [Concomitant]
     Indication: SYSTEMIC LUPUS ERYTHEMATOSUS
  7. PANTOZOL                           /01263204/ [Concomitant]
     Indication: GASTRIC ULCER
     Dosage: 40MG PER DAY
     Route: 048
  8. DIGITOXIN [Concomitant]
     Dosage: .07MG PER DAY
     Route: 048
  9. XIPAMIDE [Concomitant]
     Dosage: 10MG TWICE PER DAY
     Route: 048
  10. MAGNESIUM VERLA                    /00648601/ [Concomitant]
     Route: 048
  11. SPIRONOLACTON [Concomitant]
     Dosage: 100MG UNKNOWN
     Route: 048
  12. TRAMAL [Concomitant]
     Dosage: 100MG TWICE PER DAY
     Route: 048
  13. NOVALGIN                           /06276704/ [Concomitant]
     Route: 048
  14. POTASSIUM CHLORIDE [Concomitant]
     Route: 048

REACTIONS (4)
  - Right ventricular failure [Fatal]
  - Hypotension [Recovered/Resolved]
  - Blood pressure decreased [Recovered/Resolved]
  - Rash [Recovered/Resolved]
